FAERS Safety Report 22658052 (Version 2)
Quarter: 2023Q4

REPORT INFORMATION
  Report Type: Spontaneous
  Country: ES (occurrence: ES)
  Receive Date: 20230630
  Receipt Date: 20231115
  Transmission Date: 20240110
  Serious: Yes (Other)
  Sender: FDA-Public Use
  Company Number: ES-ABBVIE-5310685

PATIENT
  Age: 35 Year
  Sex: Female

DRUGS (1)
  1. PYLERA [Suspect]
     Active Substance: BISMUTH SUBCITRATE POTASSIUM\METRONIDAZOLE\TETRACYCLINE HYDROCHLORIDE
     Indication: Helicobacter infection
     Dosage: 3 DOSAGE FORM EVERY 6 HOUR(S)
     Route: 048
     Dates: start: 20230530, end: 20230530

REACTIONS (5)
  - Dry mouth [Unknown]
  - Fatigue [Unknown]
  - Pyrexia [Recovered/Resolved]
  - Pruritus [Unknown]
  - Erythema nodosum [Recovering/Resolving]

NARRATIVE: CASE EVENT DATE: 20230530
